FAERS Safety Report 16397774 (Version 1)
Quarter: 2019Q2

REPORT INFORMATION
  Report Type: Spontaneous
  Country: US (occurrence: US)
  Receive Date: 20190606
  Receipt Date: 20190606
  Transmission Date: 20190711
  Serious: Yes (Hospitalization)
  Sender: FDA-Public Use
  Company Number: US-PFIZER INC-2019234627

PATIENT
  Age: 53 Year
  Sex: Male
  Weight: 113 kg

DRUGS (1)
  1. NITROSTAT [Suspect]
     Active Substance: NITROGLYCERIN
     Indication: CARDIOVASCULAR EVENT PROPHYLAXIS
     Dosage: 0.4 MG, AS NEEDED
     Route: 060
     Dates: start: 2016

REACTIONS (1)
  - Back disorder [Unknown]
